FAERS Safety Report 13914249 (Version 1)
Quarter: 2017Q3

REPORT INFORMATION
  Report Type: Spontaneous
  Country: US (occurrence: US)
  Receive Date: 20170829
  Receipt Date: 20170829
  Transmission Date: 20171127
  Serious: No
  Sender: FDA-Public Use
  Company Number: US-PFIZER INC-2017330400

PATIENT
  Age: 3 Year
  Sex: Female
  Weight: 19.5 kg

DRUGS (4)
  1. GENOTROPIN [Suspect]
     Active Substance: SOMATROPIN
     Indication: HYPOPITUITARISM
     Dosage: 0.9 MG, DAILY
     Route: 058
     Dates: start: 201703
  2. ATROPINE. [Concomitant]
     Active Substance: ATROPINE
     Indication: MYDRIASIS
     Dosage: 1 GTT, DAILY (1 DROP IN HER RIGHT EYE DAILY)
  3. GENOTROPIN [Suspect]
     Active Substance: SOMATROPIN
     Indication: GROWTH HORMONE DEFICIENCY
     Dosage: 5.4 MG, WEEKLY (0.9MG 6 DAYS A WEEK BY INJECTION)
  4. DIURIL [Concomitant]
     Active Substance: CHLOROTHIAZIDE
     Indication: DIABETES INSIPIDUS
     Dosage: 0.3 MG, TWICE A DAY
     Route: 048

REACTIONS (3)
  - Headache [Unknown]
  - Arthralgia [Unknown]
  - Drug dose omission [Unknown]

NARRATIVE: CASE EVENT DATE: 20170725
